FAERS Safety Report 9158247 (Version 1)
Quarter: 2013Q1

REPORT INFORMATION
  Report Type: Spontaneous
  Country: US (occurrence: US)
  Receive Date: 20130312
  Receipt Date: 20130312
  Transmission Date: 20140127
  Serious: Yes (Life-Threatening)
  Sender: FDA-Public Use
  Company Number: US-ASTRAZENECA-2013SE16172

PATIENT
  Sex: Male

DRUGS (2)
  1. BRILINTA [Suspect]
     Indication: ACUTE CORONARY SYNDROME
     Dosage: GIVEN LOADING DOSE OF BRILINTA AND ALSO STARTED ON MAINTAINANCE DOSE
     Route: 048
  2. HEPARIN FLUSH [Concomitant]

REACTIONS (1)
  - Platelet count decreased [Unknown]
